FAERS Safety Report 6691411-2 (Version None)
Quarter: 2010Q2

REPORT INFORMATION
  Report Type: 
  Country: None (occurrence: None)
  Receive Date: 20100414
  Receipt Date: 20091204
  Transmission Date: 20101027
  Serious: Yes (Other)
  Sender: FDA-Public Use
  Company Number: 09-515

PATIENT
  Age: 49 Year
  Sex: Female

DRUGS (3)
  1. ALEVE [Suspect]
     Dosage: 44020 MG, DAILY, ORAL
     Route: 048
     Dates: end: 20091126
  2. UNKNOWN HIGH BLOOD PRESSURE MEDICATION [Concomitant]
  3. UNKNOWN CHOLESTEROL MEDICATION [Concomitant]

REACTIONS (2)
  - LIP SWELLING [None]
  - SWELLING FACE [None]
